FAERS Safety Report 17013543 (Version 2)
Quarter: 2019Q4

REPORT INFORMATION
  Report Type: Report from Study
  Country: NL (occurrence: NL)
  Receive Date: 20191110
  Receipt Date: 20191122
  Transmission Date: 20200122
  Serious: Yes (Death)
  Sender: FDA-Public Use
  Company Number: NVSC2019NL027622

PATIENT
  Sex: Male

DRUGS (1)
  1. ACLASTA [Suspect]
     Active Substance: ZOLEDRONIC ACID
     Indication: OSTEOPOROSIS
     Dosage: 5 MG, Q12MO (HOME ADMINISTERED )
     Route: 042
     Dates: start: 201901

REACTIONS (1)
  - Ileal perforation [Fatal]
